FAERS Safety Report 23112938 (Version 2)
Quarter: 2023Q4

REPORT INFORMATION
  Report Type: Report from Study
  Country: US (occurrence: US)
  Receive Date: 20231027
  Receipt Date: 20231031
  Transmission Date: 20240110
  Serious: Yes (Other)
  Sender: FDA-Public Use
  Company Number: US-NOVOPROD-1130315

PATIENT
  Sex: Female

DRUGS (1)
  1. WEGOVY [Suspect]
     Active Substance: SEMAGLUTIDE
     Indication: Obesity
     Dosage: 0.25 MG
     Route: 058

REACTIONS (10)
  - Anxiety [Not Recovered/Not Resolved]
  - Depression [Unknown]
  - Panic attack [Recovered/Resolved]
  - Presyncope [Recovered/Resolved]
  - Dysphagia [Recovered/Resolved]
  - Decreased appetite [Recovered/Resolved]
  - Headache [Recovered/Resolved]
  - Dizziness [Recovered/Resolved]
  - Heart rate increased [Not Recovered/Not Resolved]
  - Abdominal discomfort [Recovered/Resolved]
